FAERS Safety Report 4658504-2 (Version None)
Quarter: 2005Q2

REPORT INFORMATION
  Report Type: 
  Country: None (occurrence: None)
  Receive Date: 20050509
  Receipt Date: 20050114
  Transmission Date: 20051028
  Serious: Yes (Hospitalization, Other)
  Sender: FDA-Public Use
  Company Number: 2004238957US

PATIENT
  Age: 49 Year
  Sex: Female
  Weight: 69.8539 kg

DRUGS (3)
  1. DEPO-PROVERA [Suspect]
     Indication: CONTRACEPTION
     Dosage: 150 MG (150 MG, EVERY 10-12 WEEKS 1ST INJ), INTRAMUSCULAR
     Route: 030
     Dates: start: 19950101, end: 19950101
  2. DEPO-PROVERA [Suspect]
     Indication: CONTRACEPTION
     Dosage: 150 MG (150 MG, EVERY 10-12 WEEKS, LAST INJ.), INTRAMUSCULAR
     Route: 030
     Dates: start: 20040803, end: 20040803
  3. LISINOPRIL [Concomitant]

REACTIONS (2)
  - ARTERIAL THROMBOSIS [None]
  - BLOOD DISORDER [None]
